FAERS Safety Report 17914040 (Version 1)
Quarter: 2020Q2

REPORT INFORMATION
  Report Type: Other
  Country: GB (occurrence: GB)
  Receive Date: 20200619
  Receipt Date: 20200619
  Transmission Date: 20200714
  Serious: Yes (Other)
  Sender: FDA-Public Use
  Company Number: GB-CELLTRION INC.-2020GB023347

PATIENT

DRUGS (1)
  1. INFLIXIMAB (UNKNOWN) [Suspect]
     Active Substance: INFLIXIMAB
     Dosage: UNK
     Route: 051
     Dates: start: 20200514

REACTIONS (2)
  - Social avoidant behaviour [Recovered/Resolved]
  - Indifference [Recovered/Resolved]

NARRATIVE: CASE EVENT DATE: 20200514
